FAERS Safety Report 9780935 (Version 2)
Quarter: 2013Q4

REPORT INFORMATION
  Report Type: Report from Study
  Country: CA (occurrence: CA)
  Receive Date: 20131224
  Receipt Date: 20131231
  Transmission Date: 20140711
  Serious: Yes (Death)
  Sender: FDA-Public Use
  Company Number: PHHY2013CA150159

PATIENT
  Sex: Female

DRUGS (2)
  1. CLOZARIL [Suspect]
     Indication: SCHIZOPHRENIA
     Dosage: UNK
     Route: 048
     Dates: start: 20011122
  2. CLOZARIL [Suspect]
     Dosage: 125 MG, (50 MG AM AND 75 MG PM)
     Route: 048

REACTIONS (1)
  - Endometrial cancer [Fatal]
